FAERS Safety Report 15895262 (Version 1)
Quarter: 2019Q1

REPORT INFORMATION
  Report Type: Spontaneous
  Country: US (occurrence: US)
  Receive Date: 20190109
  Receipt Date: 20190109
  Transmission Date: 20190417
  Serious: Yes (Life-Threatening, Hospitalization, Disabling, Other)
  Sender: FDA-Public Use
  Company Number: None

PATIENT
  Age: 76 Year
  Sex: Male
  Weight: 88.9 kg

DRUGS (13)
  1. JANUVIA [Concomitant]
     Active Substance: SITAGLIPTIN PHOSPHATE
  2. FISH OIL [Concomitant]
     Active Substance: FISH OIL
  3. MULTI VIT [Concomitant]
     Active Substance: VITAMINS
  4. ASPIRIN. [Concomitant]
     Active Substance: ASPIRIN
  5. GARLIC. [Concomitant]
     Active Substance: GARLIC
  6. VALSARTAN 80MG [Suspect]
     Active Substance: VALSARTAN
     Indication: BLOOD PRESSURE ABNORMAL
     Dosage: 1 PER DAY, MORNING, MOUTH
     Route: 048
     Dates: start: 2012, end: 20180724
  7. GLIPIZIDE. [Concomitant]
     Active Substance: GLIPIZIDE
  8. ATORVASTATIN [Concomitant]
     Active Substance: ATORVASTATIN
  9. MEDTRONIC PACEMAKER [Concomitant]
  10. METFORMIN [Concomitant]
     Active Substance: METFORMIN HYDROCHLORIDE
  11. VITAMIN D3 [Concomitant]
     Active Substance: CHOLECALCIFEROL
  12. ELIQUIS [Concomitant]
     Active Substance: APIXABAN
  13. METAPROPAL [Concomitant]

REACTIONS (6)
  - Dizziness [None]
  - Heart rate decreased [None]
  - Impaired work ability [None]
  - Seizure [None]
  - Disorientation [None]
  - Economic problem [None]

NARRATIVE: CASE EVENT DATE: 20180725
